FAERS Safety Report 8821782 (Version 1)
Quarter: 2012Q4

REPORT INFORMATION
  Report Type: 
  Country: GB (occurrence: GB)
  Receive Date: 20121002
  Receipt Date: 20121002
  Transmission Date: 20130627
  Serious: Yes (Hospitalization)
  Sender: FDA-Public Use
  Company Number: GB-GILEAD-2012-0062050

PATIENT
  Age: 30 Year
  Sex: Male

DRUGS (4)
  1. ATRIPLA [Suspect]
     Indication: HIV INFECTION
  2. TENOFOVIR DISOPROXIL FUMARATE [Suspect]
     Indication: HIV INFECTION
  3. ABACAVIR [Concomitant]
     Indication: HIV INFECTION
  4. ATAZANAVIR [Concomitant]
     Indication: HIV INFECTION

REACTIONS (2)
  - Encephalitis [Recovering/Resolving]
  - Drug ineffective [Unknown]
